FAERS Safety Report 13002172 (Version 2)
Quarter: 2016Q4

REPORT INFORMATION
  Report Type: Spontaneous
  Country: JP (occurrence: JP)
  Receive Date: 20161206
  Receipt Date: 20161230
  Transmission Date: 20170207
  Serious: Yes (Hospitalization, Other)
  Sender: FDA-Public Use
  Company Number: JP-GLAXOSMITHKLINE-JP2016JPN176831

PATIENT
  Age: 19 Year
  Sex: Male
  Weight: 50 kg

DRUGS (3)
  1. LAMICTAL [Suspect]
     Active Substance: LAMOTRIGINE
     Indication: EPILEPSY
     Dosage: 200 MG, BID
     Route: 048
  2. MYSTAN [Suspect]
     Active Substance: CLOBAZAM
     Indication: EPILEPSY
     Dosage: 10 MG, BID
     Route: 048
  3. EXCEGRAN [Suspect]
     Active Substance: ZONISAMIDE
     Indication: EPILEPSY
     Dosage: 200 MG, BID
     Route: 048

REACTIONS (7)
  - Cerebral infarction [Recovering/Resolving]
  - Loss of consciousness [Recovering/Resolving]
  - Treatment noncompliance [Unknown]
  - Blood creatine phosphokinase increased [Recovering/Resolving]
  - Fall [Recovering/Resolving]
  - White blood cell count increased [Recovering/Resolving]
  - Epilepsy [Recovered/Resolved]

NARRATIVE: CASE EVENT DATE: 20161124
